FAERS Safety Report 6277972-6 (Version None)
Quarter: 2009Q3

REPORT INFORMATION
  Report Type: 
  Country: None (occurrence: None)
  Receive Date: 20090722
  Receipt Date: 20090717
  Transmission Date: 20100115
  Serious: Yes (Death, Life-Threatening, Hospitalization)
  Sender: FDA-Public Use
  Company Number: NL-PFIZER INC-2008013916

PATIENT
  Age: 46 Year

DRUGS (6)
  1. SUNITINIB MALATE [Suspect]
     Indication: NON-SMALL CELL LUNG CANCER
     Dosage: 37.5 MG, 1X/DAY
     Route: 048
     Dates: start: 20071015, end: 20080211
  2. *ERLOTINIB [Suspect]
     Indication: NON-SMALL CELL LUNG CANCER
     Dosage: 150 MG, 1X/DAY
     Route: 048
     Dates: start: 20071015, end: 20080211
  3. MINOCYCLINE HCL [Concomitant]
     Dates: start: 20071220
  4. METOCLOPRAMIDE [Concomitant]
     Dates: start: 20080204
  5. PANTOZOL [Concomitant]
     Dates: start: 20080204
  6. LOPERAMIDE HYDROCHLORIDE [Concomitant]
     Dates: start: 20080204

REACTIONS (4)
  - DEHYDRATION [None]
  - DIARRHOEA [None]
  - HYPOCALCAEMIA [None]
  - PANCREATITIS NECROTISING [None]
